FAERS Safety Report 20601336 (Version 2)
Quarter: 2022Q1

REPORT INFORMATION
  Report Type: Report from Study
  Country: UG (occurrence: UG)
  Receive Date: 20220316
  Receipt Date: 20220322
  Transmission Date: 20220423
  Serious: Yes (Other)
  Sender: FDA-Public Use
  Company Number: UG-MYLANLABS-2022M1019284

PATIENT
  Age: 17 Year
  Sex: Female

DRUGS (1)
  1. DOLUTEGRAVIR\LAMIVUDINE\TENOFOVIR DISOPROXIL FUMARATE [Suspect]
     Active Substance: DOLUTEGRAVIR\LAMIVUDINE\TENOFOVIR DISOPROXIL FUMARATE
     Indication: HIV infection
     Dosage: 1 DOSAGE FORM
     Route: 048
     Dates: start: 20210204

REACTIONS (2)
  - Ectopic pregnancy [Recovered/Resolved]
  - Maternal exposure during pregnancy [Recovered/Resolved]
